FAERS Safety Report 21699875 (Version 1)
Quarter: 2022Q4

REPORT INFORMATION
  Report Type: Spontaneous
  Country: JP (occurrence: JP)
  Receive Date: 20221208
  Receipt Date: 20221208
  Transmission Date: 20230113
  Serious: Yes (Hospitalization)
  Sender: FDA-Public Use
  Company Number: JP-BRAINTREE LABORATORIES, INC.-2022BTE01007

PATIENT
  Age: 64 Year
  Sex: Female
  Weight: 44 kg

DRUGS (1)
  1. MAGNESIUM SULFATE\POTASSIUM SULFATE\SODIUM SULFATE [Suspect]
     Active Substance: MAGNESIUM SULFATE\POTASSIUM SULFATE\SODIUM SULFATE
     Indication: Colonoscopy
     Dosage: 480 ML, 1X/DAY
     Route: 048
     Dates: start: 20221109, end: 20221109

REACTIONS (1)
  - Ileus [Recovered/Resolved]

NARRATIVE: CASE EVENT DATE: 20221109
